FAERS Safety Report 6525833-7 (Version None)
Quarter: 2010Q1

REPORT INFORMATION
  Report Type: 
  Country: None (occurrence: None)
  Receive Date: 20100104
  Receipt Date: 20091224
  Transmission Date: 20100710
  Serious: No
  Sender: FDA-Public Use
  Company Number: B0612449A

PATIENT
  Sex: Male
  Weight: 30 kg

DRUGS (3)
  1. RELENZA [Suspect]
     Indication: INFLUENZA
     Dosage: 10MG TWICE PER DAY
     Route: 055
     Dates: start: 20091201, end: 20091201
  2. MEDICON [Concomitant]
     Indication: COUGH
     Dosage: 45MG PER DAY
     Route: 048
  3. CALONAL [Concomitant]
     Indication: COUGH
     Route: 048

REACTIONS (2)
  - ABNORMAL BEHAVIOUR [None]
  - WEIGHT DECREASED [None]
